FAERS Safety Report 6222883-5 (Version None)
Quarter: 2009Q2

REPORT INFORMATION
  Report Type: 
  Country: None (occurrence: None)
  Receive Date: 20090611
  Receipt Date: 20090608
  Transmission Date: 20091009
  Serious: Yes (Hospitalization)
  Sender: FDA-Public Use
  Company Number: US-BRISTOL-MYERS SQUIBB COMPANY-14540645

PATIENT
  Age: 49 Year
  Sex: Male
  Weight: 44 kg

DRUGS (3)
  1. CISPLATIN [Suspect]
     Indication: OESOPHAGEAL CARCINOMA
     Dosage: 1 COURSE= 1 WEEK,25MG/M2 ON DAYS 1,8,15,22,29,36;DRUG WITHDRAWN ON DAY 36.INITIAL DOSE:02FEB09.
     Route: 042
     Dates: start: 20090302, end: 20090302
  2. TAXOL [Suspect]
     Indication: OESOPHAGEAL CARCINOMA
     Dosage: 1 COURSE= 1 WEEK, 50MG/M2 IV;TREATED ON DAY 1,8,15,22,29;DRUGWITHDRAWN DAY36;INITIAL 02FEB09.
     Route: 042
     Dates: start: 20090302, end: 20090302
  3. RADIATION THERAPY [Suspect]
     Indication: OESOPHAGEAL CARCINOMA
     Dosage: 1 DOSAGE FORM=4680 CGY (TOTAL DOSE TILL 12MAR09) NO. OF FRACTIONS 26 NO. OF ELAPSED DAYS 2
     Dates: start: 20090312, end: 20090312

REACTIONS (7)
  - DEHYDRATION [None]
  - HAEMOGLOBIN DECREASED [None]
  - OESOPHAGEAL FISTULA [None]
  - OESOPHAGEAL PAIN [None]
  - OESOPHAGITIS [None]
  - PYREXIA [None]
  - WEIGHT DECREASED [None]
